FAERS Safety Report 9102776 (Version 3)
Quarter: 2013Q1

REPORT INFORMATION
  Report Type: Report from Study
  Country: US (occurrence: US)
  Receive Date: 20130219
  Receipt Date: 20130301
  Transmission Date: 20140127
  Serious: Yes (Hospitalization)
  Sender: FDA-Public Use
  Company Number: US-JNJFOC-20130207823

PATIENT
  Age: 17 Year
  Sex: Female
  Weight: 61.24 kg

DRUGS (5)
  1. REMICADE [Suspect]
     Indication: INFLAMMATORY BOWEL DISEASE
     Route: 042
     Dates: start: 20110505, end: 20111005
  2. AZATHIOPRINE [Concomitant]
  3. 5-ASA [Concomitant]
  4. PREDNISONE [Concomitant]
  5. HUMIRA [Concomitant]
     Dates: start: 20120124

REACTIONS (1)
  - Inflammatory bowel disease [Not Recovered/Not Resolved]
